FAERS Safety Report 14651564 (Version 2)
Quarter: 2018Q1

REPORT INFORMATION
  Report Type: Report from Study
  Country: ZA (occurrence: ZA)
  Receive Date: 20180317
  Receipt Date: 20180324
  Transmission Date: 20180509
  Serious: Yes (Death, Other)
  Sender: FDA-Public Use
  Company Number: ZA-AMGEN-ZAFSL2018036418

PATIENT
  Age: 65 Year
  Sex: Male
  Weight: 101 kg

DRUGS (2)
  1. ARANESP [Suspect]
     Active Substance: DARBEPOETIN ALFA
     Indication: ANAEMIA
  2. ARANESP [Suspect]
     Active Substance: DARBEPOETIN ALFA
     Indication: CHRONIC KIDNEY DISEASE
     Dosage: 60 MUG, Q2WK
     Route: 058
     Dates: start: 201202, end: 201803

REACTIONS (5)
  - Dialysis related complication [Unknown]
  - Myocardial infarction [Unknown]
  - Asthenia [Unknown]
  - Blood creatinine increased [Unknown]
  - Renal failure [Fatal]

NARRATIVE: CASE EVENT DATE: 20180305
